FAERS Safety Report 17688042 (Version 3)
Quarter: 2020Q3

REPORT INFORMATION
  Report Type: Report from Study
  Country: FR (occurrence: FR)
  Receive Date: 20200421
  Receipt Date: 20200813
  Transmission Date: 20201102
  Serious: Yes (Hospitalization)
  Sender: FDA-Public Use
  Company Number: NVSC2020FR002885

PATIENT
  Age: 64 Year
  Sex: Male
  Weight: 66.7 kg

DRUGS (7)
  1. MYCOPHENOLIC ACID. [Suspect]
     Active Substance: MYCOPHENOLIC ACID
     Indication: RENAL TRANSPLANT
     Dosage: 1440 MG
     Route: 048
     Dates: start: 20181106
  2. TACROLIMUS. [Suspect]
     Active Substance: TACROLIMUS
     Indication: RENAL TRANSPLANT
     Dosage: UNK
     Route: 048
     Dates: start: 20180704, end: 20181105
  3. MYCOPHENOLIC ACID. [Suspect]
     Active Substance: MYCOPHENOLIC ACID
     Dosage: 360X4, UNK
     Route: 048
     Dates: start: 20181120
  4. EVEROLIMUS. [Suspect]
     Active Substance: EVEROLIMUS
     Indication: RENAL TRANSPLANT
     Dosage: 4.5 MG, QD
     Route: 048
     Dates: start: 20180704
  5. AUGMENTIN [Concomitant]
     Active Substance: AMOXICILLIN\CLAVULANATE POTASSIUM
     Indication: DIURETIC THERAPY
     Dosage: UNK
     Route: 065
  6. SDZ CHI 621 [Suspect]
     Active Substance: BASILIXIMAB
     Indication: RENAL TRANSPLANT
     Dosage: UNK
     Route: 065
     Dates: start: 20180704
  7. CORTANCYL [Suspect]
     Active Substance: PREDNISONE
     Indication: PRODUCT USED FOR UNKNOWN INDICATION
     Dosage: 5 MG
     Route: 065
     Dates: start: 20180708

REACTIONS (7)
  - Dyspnoea [Recovered/Resolved with Sequelae]
  - Diabetes mellitus inadequate control [Recovered/Resolved with Sequelae]
  - Acute kidney injury [Recovered/Resolved]
  - Blood pressure increased [Unknown]
  - Acute pulmonary oedema [Unknown]
  - Cardiac failure [Recovered/Resolved with Sequelae]
  - Cardiac failure [Recovered/Resolved]

NARRATIVE: CASE EVENT DATE: 20181112
